FAERS Safety Report 17098636 (Version 15)
Quarter: 2021Q1

REPORT INFORMATION
  Report Type: Spontaneous
  Country: US (occurrence: US)
  Receive Date: 20191202
  Receipt Date: 20210115
  Transmission Date: 20210419
  Serious: No
  Sender: FDA-Public Use
  Company Number: US-PFIZER INC-2019514518

PATIENT
  Age: 60 Year
  Sex: Female
  Weight: 77 kg

DRUGS (14)
  1. LYRICA [Suspect]
     Active Substance: PREGABALIN
     Dosage: 75 MG, TWICE DAILY
     Route: 048
  2. MELOXICAM. [Concomitant]
     Active Substance: MELOXICAM
     Indication: SPINAL OSTEOARTHRITIS
  3. LYRICA [Suspect]
     Active Substance: PREGABALIN
     Indication: SPINAL STENOSIS
     Dosage: 50 MG, TWICE DAILY
     Route: 048
  4. MELOXICAM. [Concomitant]
     Active Substance: MELOXICAM
     Indication: ARTHRITIS
  5. LYRICA [Suspect]
     Active Substance: PREGABALIN
     Indication: OSTEOARTHRITIS
     Dosage: 50 MG, TWICE DAILY
     Route: 048
     Dates: start: 20190101
  6. MELOXICAM. [Concomitant]
     Active Substance: MELOXICAM
     Indication: OSTEOARTHRITIS
     Dosage: 15 MG, 2X/DAY
     Dates: start: 201907
  7. LYRICA [Suspect]
     Active Substance: PREGABALIN
     Dosage: 1 DF, DAILY (ONE CAPSULE A DAY)
  8. LYRICA [Suspect]
     Active Substance: PREGABALIN
     Dosage: 100 MG
     Route: 048
     Dates: start: 20200825, end: 20200825
  9. LYRICA [Suspect]
     Active Substance: PREGABALIN
     Dosage: 50 MG, AS NEEDED, (TAKE 1 CAPSULE BY MOUTH TWICE A DAY AS NEEDED)
     Route: 048
  10. MELOXICAM. [Concomitant]
     Active Substance: MELOXICAM
     Indication: FIBROMYALGIA
     Dosage: 15 MG, 1X/DAY
     Dates: start: 20190601, end: 2019
  11. LYRICA [Suspect]
     Active Substance: PREGABALIN
     Indication: FIBROMYALGIA
     Dosage: 50 MG, 2X/DAY
     Route: 048
     Dates: start: 201810
  12. LYRICA [Suspect]
     Active Substance: PREGABALIN
     Indication: PAIN
     Dosage: 50 MG, TWICE DAILY
     Route: 048
     Dates: start: 201811
  13. LYRICA [Suspect]
     Active Substance: PREGABALIN
     Indication: SPINAL OSTEOARTHRITIS
     Dosage: 50 MG, ONCE DAILY
     Route: 048
     Dates: start: 20191201
  14. MELOXICAM. [Concomitant]
     Active Substance: MELOXICAM
     Indication: SPINAL STENOSIS

REACTIONS (10)
  - Nervousness [Unknown]
  - Therapeutic product effect incomplete [Unknown]
  - Pain [Recovered/Resolved]
  - Dysphemia [Unknown]
  - Balance disorder [Unknown]
  - Wrong dose [Unknown]
  - Intentional product use issue [Unknown]
  - Sleep disorder [Unknown]
  - Condition aggravated [Not Recovered/Not Resolved]
  - Gait disturbance [Unknown]

NARRATIVE: CASE EVENT DATE: 20190501
